FAERS Safety Report 5117555-4 (Version None)
Quarter: 2006Q3

REPORT INFORMATION
  Report Type: 
  Country: None (occurrence: None)
  Receive Date: 20060926
  Receipt Date: 20060905
  Transmission Date: 20061208
  Serious: Yes (Other)
  Sender: FDA-Public Use
  Company Number: US200609002029

PATIENT
  Age: 7 Year
  Weight: 29 kg

DRUGS (2)
  1. FLUOXETINE HYDROCHLORIDE [Suspect]
     Dosage: SEE IMAGE
  2. DIVALPROEX SODIUM [Concomitant]

REACTIONS (1)
  - IRRITABILITY [None]
